FAERS Safety Report 12968579 (Version 1)
Quarter: 2016Q4

REPORT INFORMATION
  Report Type: Spontaneous
  Country: US (occurrence: US)
  Receive Date: 20161123
  Receipt Date: 20161123
  Transmission Date: 20170207
  Serious: No
  Sender: FDA-Public Use
  Company Number: US-BAYER-2016-223572

PATIENT
  Sex: Male
  Weight: 86.17 kg

DRUGS (2)
  1. ALEVE [Suspect]
     Active Substance: NAPROXEN SODIUM
     Dosage: UNK
  2. ADVIL PM [DIPHENHYDRAMINE CITRATE,IBUPROFEN] [Concomitant]
     Dosage: UNK
     Dates: start: 20151208

REACTIONS (1)
  - Drug ineffective [Unknown]
